FAERS Safety Report 20771047 (Version 3)
Quarter: 2022Q3

REPORT INFORMATION
  Report Type: Spontaneous
  Country: US (occurrence: US)
  Receive Date: 20220429
  Receipt Date: 20220706
  Transmission Date: 20221027
  Serious: Yes (Other)
  Sender: FDA-Public Use
  Company Number: US-HERON THERAPEUTICS, INC-HRTX-2022-000781

PATIENT
  Sex: Female

DRUGS (6)
  1. ZYNRELEF [Suspect]
     Active Substance: BUPIVACAINE\MELOXICAM
     Indication: Postoperative analgesia
     Dosage: 14 MILLILITER
     Route: 026
     Dates: start: 20220207, end: 20220207
  2. EPINEPHRINE [Concomitant]
     Active Substance: EPINEPHRINE
     Indication: Postoperative analgesia
     Dosage: 0.3 MILLIGRAM
  3. ANCEF [Concomitant]
     Active Substance: CEFAZOLIN SODIUM
     Indication: Postoperative analgesia
     Dosage: 750 MILLIGRAM
  4. VANCOMYCIN [Concomitant]
     Active Substance: VANCOMYCIN
     Indication: Postoperative analgesia
     Dosage: 1 GRAM
  5. DEPO-MEDROL [Concomitant]
     Active Substance: METHYLPREDNISOLONE ACETATE
     Indication: Postoperative analgesia
     Dosage: 80 MILLIGRAM
  6. MORPHINE [Concomitant]
     Active Substance: MORPHINE
     Indication: Postoperative analgesia
     Dosage: 8 GRAM

REACTIONS (1)
  - Wound necrosis [Not Recovered/Not Resolved]
